FAERS Safety Report 7556724-0 (Version None)
Quarter: 2011Q2

REPORT INFORMATION
  Report Type: 
  Country: None (occurrence: None)
  Receive Date: 20110616
  Receipt Date: 20110616
  Transmission Date: 20111010
  Serious: Yes (Hospitalization)
  Sender: FDA-Public Use
  Company Number: None

PATIENT
  Age: 60 Year
  Sex: Male
  Weight: 125.4 kg

DRUGS (2)
  1. PSEUDOEPHEDRINE HCL [Suspect]
     Indication: PAIN
     Dosage: 120 MG ONCE PO
     Route: 048
     Dates: start: 20110428, end: 20110428
  2. NAPROXEN [Suspect]
     Dosage: 440 MG ONCE PO
     Route: 048
     Dates: start: 20110428, end: 20110428

REACTIONS (4)
  - DYSPHONIA [None]
  - RASH [None]
  - DYSPNOEA [None]
  - OEDEMA [None]
